FAERS Safety Report 23915692 (Version 1)
Quarter: 2024Q2

REPORT INFORMATION
  Report Type: Spontaneous
  Country: CA (occurrence: CA)
  Receive Date: 20240529
  Receipt Date: 20240529
  Transmission Date: 20240715
  Serious: Yes (Death)
  Sender: FDA-Public Use
  Company Number: CA-FreseniusKabi-FK202408209

PATIENT
  Age: 43 Year
  Sex: Male

DRUGS (13)
  1. GANCICLOVIR [Suspect]
     Active Substance: GANCICLOVIR
     Indication: Encephalitis cytomegalovirus
     Dosage: FORM OF ADMIN: POWDER FOR SOLUTION INTRAVENOUS
     Route: 042
  2. GANCICLOVIR [Suspect]
     Active Substance: GANCICLOVIR
     Dosage: FORM OF ADMIN: POWDER FOR SOLUTION INTRAVENOUS
     Route: 042
  3. THYMOCYTE IMMUNE GLOBULIN NOS [Suspect]
     Active Substance: THYMOCYTE IMMUNE GLOBULIN NOS
     Indication: Prophylaxis against graft versus host disease
     Dosage: NOT SPECIFIED
  4. THYMOCYTE IMMUNE GLOBULIN NOS [Suspect]
     Active Substance: THYMOCYTE IMMUNE GLOBULIN NOS
     Indication: Graft versus host disease in gastrointestinal tract
  5. CYCLOSPORINE [Suspect]
     Active Substance: CYCLOSPORINE
     Indication: Graft versus host disease in gastrointestinal tract
     Dosage: NOT SPECIFIED
  6. HYDROCORTISONE [Suspect]
     Active Substance: HYDROCORTISONE
     Indication: Graft versus host disease in gastrointestinal tract
     Dosage: NOT SPECIFIED
     Route: 065
  7. CYCLOPHOSPHAMIDE [Suspect]
     Active Substance: CYCLOPHOSPHAMIDE
     Indication: Product used for unknown indication
     Dosage: NOT SPECIFIED
  8. CYTOGAM [Suspect]
     Active Substance: HUMAN CYTOMEGALOVIRUS IMMUNE GLOBULIN
     Indication: Encephalitis cytomegalovirus
     Dosage: FORM OF ADMIN: SOLUTION INTRAVENOUS
     Route: 037
  9. FOSCARNET SODIUM [Suspect]
     Active Substance: FOSCARNET SODIUM
     Dosage: NOT SPECIFIED
  10. RITUXIMAB [Suspect]
     Active Substance: RITUXIMAB
     Indication: Epstein-Barr viraemia
  11. VALGANCICLOVIR [Suspect]
     Active Substance: VALGANCICLOVIR
     Indication: Cytomegalovirus infection reactivation
     Dosage: NOT SPECIFIED
  12. FLUDARABINE [Concomitant]
     Active Substance: FLUDARABINE PHOSPHATE
     Indication: Product used for unknown indication
     Dosage: NOT SPECIFIED
  13. PREVYMIS 240 MG/12 MLSINGLE-DOSE VIAL [Concomitant]
     Indication: Product used for unknown indication
     Dosage: FORM OF ADMIN: SOLUTION INTRAVENOUS

REACTIONS (14)
  - Acute kidney injury [Fatal]
  - BK virus infection [Fatal]
  - Cystitis haemorrhagic [Fatal]
  - Cytomegalovirus infection reactivation [Fatal]
  - Drug ineffective [Fatal]
  - Encephalitis cytomegalovirus [Fatal]
  - Epstein-Barr viraemia [Fatal]
  - Generalised oedema [Fatal]
  - Lung disorder [Fatal]
  - Myelosuppression [Fatal]
  - Nephropathy toxic [Fatal]
  - Off label use [Fatal]
  - Pancytopenia [Fatal]
  - Respiratory distress [Fatal]
